FAERS Safety Report 23834466 (Version 1)
Quarter: 2024Q2

REPORT INFORMATION
  Report Type: Spontaneous
  Country: US (occurrence: US)
  Receive Date: 20240509
  Receipt Date: 20240509
  Transmission Date: 20240716
  Serious: No
  Sender: FDA-Public Use
  Company Number: US-UCBSA-2023050096

PATIENT
  Sex: Female
  Weight: 105.2 kg

DRUGS (11)
  1. CIMZIA [Suspect]
     Active Substance: CERTOLIZUMAB PEGOL
     Indication: Psoriatic arthropathy
     Dosage: 200 MILLIGRAM, EV 2 WEEKS(QOW)
     Route: 058
     Dates: start: 202208
  2. CIMZIA [Suspect]
     Active Substance: CERTOLIZUMAB PEGOL
     Dosage: 200 MILLIGRAM, EV 2 WEEKS(QOW)
     Route: 058
     Dates: start: 202208, end: 202310
  3. SULFASALAZINE [Concomitant]
     Active Substance: SULFASALAZINE
     Indication: Product used for unknown indication
     Dosage: 500 MILLIGRAM
  4. MOUNJARO [Concomitant]
     Active Substance: TIRZEPATIDE
     Indication: Product used for unknown indication
     Dosage: 10MG/0.5ML PEN INJCTR
  5. ORILISSA [Concomitant]
     Active Substance: ELAGOLIX SODIUM
     Indication: Product used for unknown indication
     Dosage: 150 MILLIGRAM
  6. PROAIR DIGIHALER [Concomitant]
     Active Substance: ALBUTEROL SULFATE
     Indication: Product used for unknown indication
     Dosage: 90 MCG AER PW BAS
  7. GABAPENTIN [Concomitant]
     Active Substance: GABAPENTIN
     Indication: Product used for unknown indication
     Dosage: 600 MILLIGRAM
  8. SINGULAIR [Concomitant]
     Active Substance: MONTELUKAST SODIUM
     Indication: Product used for unknown indication
     Dosage: 10 MILLIGRAM
  9. LOSARTAN POTASSIUM [Concomitant]
     Active Substance: LOSARTAN POTASSIUM
     Indication: Product used for unknown indication
     Dosage: 100 MILLIGRAM
  10. WELLBUTRIN [Concomitant]
     Active Substance: BUPROPION HYDROCHLORIDE
     Indication: Product used for unknown indication
     Dosage: 150 MILLIGRAM, ONCE DAILY (QD)
  11. SKYRIZI [Concomitant]
     Active Substance: RISANKIZUMAB-RZAA
     Indication: Product used for unknown indication
     Dosage: UNK

REACTIONS (3)
  - Fungal infection [Unknown]
  - Psoriasis [Unknown]
  - Drug ineffective [Unknown]
